FAERS Safety Report 6076346-0 (Version None)
Quarter: 2009Q1

REPORT INFORMATION
  Report Type: 
  Country: None (occurrence: None)
  Receive Date: 20090209
  Receipt Date: 20090127
  Transmission Date: 20090719
  Serious: Yes (Other)
  Sender: FDA-Public Use
  Company Number: 2005AL000020

PATIENT
  Age: 59 Year
  Sex: Male
  Weight: 87.0906 kg

DRUGS (16)
  1. METOCLOPRAMIDE [Suspect]
     Indication: GASTROOESOPHAGEAL REFLUX DISEASE
     Dosage: 10 MG;QID;UNK
     Dates: start: 20000808, end: 20030718
  2. METOCLOPRAMIDE [Suspect]
     Indication: GASTROOESOPHAGEAL REFLUX DISEASE
     Dates: start: 20000808, end: 20030718
  3. REGLAN [Suspect]
     Indication: GASTROOESOPHAGEAL REFLUX DISEASE
     Dates: start: 20000808, end: 20030718
  4. PREVACID [Concomitant]
  5. COMBIVENT [Concomitant]
  6. CELEXA [Concomitant]
  7. CARAFATE [Concomitant]
  8. LORAZEPAM [Concomitant]
  9. DARVOCET-N 100 [Concomitant]
  10. PRILOSEC [Concomitant]
  11. TORADOL [Concomitant]
  12. MORPHINE [Concomitant]
  13. NORFLEX [Concomitant]
  14. MEDROL [Concomitant]
  15. PERCOCET [Concomitant]
  16. VALIUM [Concomitant]

REACTIONS (81)
  - ANHEDONIA [None]
  - ANXIETY [None]
  - ASTHENIA [None]
  - AVERSION [None]
  - BACK PAIN [None]
  - BLOOD BILIRUBIN INCREASED [None]
  - BLOOD GLUCOSE INCREASED [None]
  - BODY TEMPERATURE INCREASED [None]
  - BRUXISM [None]
  - CEREBRAL ATROPHY [None]
  - CHEST DISCOMFORT [None]
  - CHEST PAIN [None]
  - CHILLS [None]
  - CHRONIC OBSTRUCTIVE PULMONARY DISEASE [None]
  - CONSTIPATION [None]
  - CONVULSION [None]
  - COUGH [None]
  - DECREASED APPETITE [None]
  - DIVERTICULUM [None]
  - DIZZINESS [None]
  - DRUG INEFFECTIVE [None]
  - DYSARTHRIA [None]
  - DYSKINESIA [None]
  - DYSPEPSIA [None]
  - DYSPHONIA [None]
  - DYSPNOEA EXERTIONAL [None]
  - DYSTONIA [None]
  - EAR PAIN [None]
  - ECONOMIC PROBLEM [None]
  - EMOTIONAL DISTRESS [None]
  - EPULIS [None]
  - ERECTILE DYSFUNCTION [None]
  - GINGIVAL PAIN [None]
  - GINGIVITIS [None]
  - HAEMATOCRIT DECREASED [None]
  - HAEMOGLOBIN DECREASED [None]
  - HAEMOPTYSIS [None]
  - HAEMORRHOIDS [None]
  - HEAD DISCOMFORT [None]
  - INCOHERENT [None]
  - INCREASED BRONCHIAL SECRETION [None]
  - INJURY [None]
  - INTERVERTEBRAL DISC DEGENERATION [None]
  - LARYNGOSPASM [None]
  - LIP DISORDER [None]
  - LOSS OF CONSCIOUSNESS [None]
  - METAPLASIA [None]
  - MOUTH ULCERATION [None]
  - MUNCHAUSEN'S SYNDROME [None]
  - MUSCULOSKELETAL CHEST PAIN [None]
  - NERVE INJURY [None]
  - NITRITE URINE PRESENT [None]
  - OSTEONECROSIS [None]
  - PAIN [None]
  - PAIN IN JAW [None]
  - PALPITATIONS [None]
  - PANIC ATTACK [None]
  - PARAESTHESIA [None]
  - PHARYNGEAL ERYTHEMA [None]
  - PLEURAL FIBROSIS [None]
  - POSTNASAL DRIP [None]
  - PRODUCTIVE COUGH [None]
  - PULMONARY CONGESTION [None]
  - RED BLOOD CELL COUNT DECREASED [None]
  - REFLUX OESOPHAGITIS [None]
  - REGURGITATION [None]
  - RETCHING [None]
  - SLEEP APNOEA SYNDROME [None]
  - SOCIAL PHOBIA [None]
  - SOMNOLENCE [None]
  - SYNCOPE [None]
  - TARDIVE DYSKINESIA [None]
  - THINKING ABNORMAL [None]
  - THROAT IRRITATION [None]
  - TINNITUS [None]
  - TRISMUS [None]
  - UNRESPONSIVE TO STIMULI [None]
  - URINE BILIRUBIN INCREASED [None]
  - VOCAL CORD DISORDER [None]
  - WHEEZING [None]
  - WHITE BLOOD CELL COUNT INCREASED [None]
